FAERS Safety Report 7593518-4 (Version None)
Quarter: 2011Q3

REPORT INFORMATION
  Report Type: 
  Country: None (occurrence: None)
  Receive Date: 20110706
  Receipt Date: 20110630
  Transmission Date: 20111222
  Serious: Yes (Other)
  Sender: FDA-Public Use
  Company Number: ES-ROCHE-786901

PATIENT
  Age: 51 Year
  Sex: Female

DRUGS (1)
  1. ACTEMRA [Suspect]
     Indication: RHEUMATOID ARTHRITIS
     Dosage: DOSE AS REPORTED: 20MG/ML 1 VIAL 4ML
     Route: 065
     Dates: start: 20110311, end: 20110408

REACTIONS (2)
  - HYPOXIA [None]
  - BRONCHOSPASM [None]
